FAERS Safety Report 17177969 (Version 1)
Quarter: 2019Q4

REPORT INFORMATION
  Report Type: Spontaneous
  Country: US (occurrence: US)
  Receive Date: 20191219
  Receipt Date: 20191219
  Transmission Date: 20200122
  Serious: No
  Sender: FDA-Public Use
  Company Number: US-009507513-1912USA006167

PATIENT
  Age: 18 Year
  Sex: Male

DRUGS (3)
  1. TRAMETINIB [Suspect]
     Active Substance: TRAMETINIB
     Dosage: 12 CYCLES, ADDITIONAL SIX CYCLES
  2. TEMODAR [Suspect]
     Active Substance: TEMOZOLOMIDE
     Indication: ANAPLASTIC ASTROCYTOMA
     Dosage: 12 CYCLES
  3. VEMURAFENIB. [Suspect]
     Active Substance: VEMURAFENIB
     Dosage: 12 CYCLES, ADDITIONAL SIX CYCLES

REACTIONS (2)
  - Skin toxicity [Unknown]
  - Fat necrosis [Unknown]
